FAERS Safety Report 19059906 (Version 8)
Quarter: 2024Q3

REPORT INFORMATION
  Report Type: Other
  Country: CA (occurrence: CA)
  Receive Date: 20210326
  Receipt Date: 20240905
  Transmission Date: 20241017
  Serious: Yes (Hospitalization, Other)
  Sender: APOTEX
  Company Number: CA-APOTEX-2021AP006840

PATIENT
  Age: 62 Year
  Sex: Male

DRUGS (9)
  1. METFORMIN [Suspect]
     Active Substance: METFORMIN HYDROCHLORIDE
     Indication: Product used for unknown indication
     Dosage: 1000 MILLIGRAM, BID
     Route: 065
  2. SANDOSTATIN LAR DEPOT [Suspect]
     Active Substance: OCTREOTIDE ACETATE
     Indication: Carcinoid tumour
     Dosage: 0.75 MICROGRAM, TID (THERAPY DURATION: -30 UNSPECIIFED UNIT)
     Route: 058
  3. SANDOSTATIN LAR DEPOT [Suspect]
     Active Substance: OCTREOTIDE ACETATE
     Dosage: 40 MILLIGRAM, ONCE EVERY 4 WEEKS
     Route: 030
  4. SANDOSTATIN LAR DEPOT [Suspect]
     Active Substance: OCTREOTIDE ACETATE
     Dosage: UNK, Q.3W
     Route: 030
  5. SANDOSTATIN LAR DEPOT [Suspect]
     Active Substance: OCTREOTIDE ACETATE
     Dosage: 20 MILLIGRAM, Q.M.T. (THERAPY DURATION -47 UNSPECIFIED UNIT)
     Route: 030
  6. SANDOSTATIN LAR DEPOT [Suspect]
     Active Substance: OCTREOTIDE ACETATE
     Dosage: 30 MILLIGRAM, Q.M.T.
     Route: 030
  7. SANDOSTATIN LAR DEPOT [Suspect]
     Active Substance: OCTREOTIDE ACETATE
     Dosage: 50 MILLIGRAM, ONCE EVERY 4 WEEKS
     Route: 030
  8. DIAMICRON [Concomitant]
     Indication: Product used for unknown indication
     Dosage: 90 MILLIGRAM, QD
     Route: 065
  9. MAGNESIUM [Concomitant]
     Active Substance: MAGNESIUM
     Indication: Product used for unknown indication
     Dosage: 15 MILLILITER, TID
     Route: 048

REACTIONS (20)
  - Blood pressure increased [Unknown]
  - Carcinoid tumour [Unknown]
  - Malignant neoplasm progression [Unknown]
  - Incorrect route of product administration [Unknown]
  - Hepatic pain [Unknown]
  - Inappropriate schedule of product administration [Unknown]
  - Product dose omission issue [Unknown]
  - Metastases to lung [Unknown]
  - Pancreatic carcinoma [Unknown]
  - Blood glucose increased [Unknown]
  - Urinary bladder haemorrhage [Unknown]
  - Metastases to spine [Unknown]
  - Urinary tract infection [Unknown]
  - Hypertension [Unknown]
  - Fatigue [Unknown]
  - Feeling cold [Unknown]
  - Pancreatitis [Unknown]
  - Abdominal pain [Unknown]
  - Abdominal pain upper [Unknown]
  - Nausea [Unknown]
